FAERS Safety Report 4348622-0 (Version None)
Quarter: 2004Q2

REPORT INFORMATION
  Report Type: 
  Country: None (occurrence: None)
  Receive Date: 20040423
  Receipt Date: 20040415
  Transmission Date: 20050107
  Serious: Yes (Hospitalization, Other)
  Sender: FDA-Public Use
  Company Number: FRWYE704915APR04

PATIENT
  Age: 33 Year
  Sex: Male

DRUGS (2)
  1. EFFEXOR [Suspect]
     Dosage: 50 MG 1X PER 1 DAY ORAL
     Route: 048
     Dates: start: 20040108, end: 20040108
  2. XANAX [Concomitant]

REACTIONS (4)
  - PARAESTHESIA [None]
  - TETANY [None]
  - VISUAL DISTURBANCE [None]
  - VOMITING [None]
